FAERS Safety Report 10033055 (Version 1)
Quarter: 2014Q1

REPORT INFORMATION
  Report Type: Spontaneous
  Country: IE (occurrence: IE)
  Receive Date: 20140324
  Receipt Date: 20140324
  Transmission Date: 20141002
  Serious: Yes (Hospitalization)
  Sender: FDA-Public Use
  Company Number: US-ASTRAZENECA-2014SE19279

PATIENT
  Age: 7 Month
  Sex: Female

DRUGS (3)
  1. SYNAGIS [Suspect]
     Indication: PREMATURE BABY
     Route: 030
     Dates: start: 20140114, end: 20140114
  2. ABIDEC [Concomitant]
  3. GALFER [Concomitant]

REACTIONS (1)
  - Bronchiolitis [Not Recovered/Not Resolved]
